FAERS Safety Report 7991883-7 (Version None)
Quarter: 2011Q4

REPORT INFORMATION
  Report Type: 
  Country: None (occurrence: None)
  Receive Date: 20111219
  Receipt Date: 20111215
  Transmission Date: 20120403
  Serious: Yes (Hospitalization, Other)
  Sender: FDA-Public Use
  Company Number: IE-AMGEN-IRLSP2011040449

PATIENT
  Age: 60 Year
  Sex: Female

DRUGS (11)
  1. FLUOROURACIL [Concomitant]
  2. METHOTREXATE [Concomitant]
  3. FLUTICASONE FUROATE [Concomitant]
  4. CALCIUM CARBONATE [Concomitant]
  5. NEULASTA [Suspect]
     Indication: CHEMOTHERAPY
     Dosage: 6 MG, Q3WK
     Route: 058
     Dates: start: 20110603
  6. ANXICALM                           /00017001/ [Concomitant]
  7. CYCLOPHOSPHAMIDE [Concomitant]
  8. ANAFRANIL [Concomitant]
  9. PANTOPRAZOLE [Concomitant]
  10. NEOCLARITYN [Concomitant]
  11. LAMICTAL [Concomitant]

REACTIONS (6)
  - OROPHARYNGEAL BLISTERING [None]
  - BONE PAIN [None]
  - MALAISE [None]
  - SKIN INFECTION [None]
  - PANCYTOPENIA [None]
  - SEPSIS [None]
